FAERS Safety Report 8505583-8 (Version None)
Quarter: 2012Q3

REPORT INFORMATION
  Report Type: 
  Country: None (occurrence: None)
  Receive Date: 20120712
  Receipt Date: 20120703
  Transmission Date: 20120928
  Serious: Yes (Death)
  Sender: FDA-Public Use
  Company Number: CH-SANOFI-AVENTIS-2012SA047867

PATIENT

DRUGS (2)
  1. OXALIPLATIN [Suspect]
     Dosage: RECEIVED ON DAY 1 AND 22.
     Route: 065
  2. CAPECITABINE [Suspect]
     Dosage: RECEIVED TWICE A DAY ON DAY 1-14.
     Route: 065

REACTIONS (1)
  - MYOCARDIAL INFARCTION [None]
